FAERS Safety Report 17060899 (Version 1)
Quarter: 2019Q4

REPORT INFORMATION
  Report Type: Spontaneous
  Country: IT (occurrence: IT)
  Receive Date: 20191121
  Receipt Date: 20191121
  Transmission Date: 20200122
  Serious: Yes (Life-Threatening, Hospitalization)
  Sender: FDA-Public Use
  Company Number: IT-MYLANLABS-2019M1112715

PATIENT
  Age: 76 Year
  Sex: Female

DRUGS (2)
  1. METHOTREXATE. [Suspect]
     Active Substance: METHOTREXATE
     Indication: RHEUMATOID ARTHRITIS
     Route: 065
  2. PREDNISONE. [Suspect]
     Active Substance: PREDNISONE
     Indication: RHEUMATOID ARTHRITIS
     Dosage: 2.5 MILLIGRAM
     Route: 065

REACTIONS (7)
  - Quadriplegia [Recovered/Resolved]
  - Encephalitis brain stem [Recovered/Resolved]
  - Monoparesis [Recovered/Resolved]
  - Depressed level of consciousness [Recovered/Resolved]
  - Ataxia [Recovered/Resolved]
  - Whipple^s disease [Recovered/Resolved]
  - Cranial nerve disorder [Recovered/Resolved]
